FAERS Safety Report 15428711 (Version 1)
Quarter: 2018Q3

REPORT INFORMATION
  Report Type: Spontaneous
  Country: CA (occurrence: CA)
  Receive Date: 20180926
  Receipt Date: 20180926
  Transmission Date: 20181010
  Serious: Yes (Other)
  Sender: FDA-Public Use
  Company Number: CA-INCYTE CORPORATION-2018IN009628

PATIENT

DRUGS (1)
  1. JAKAVI [Suspect]
     Active Substance: RUXOLITINIB
     Indication: GRAFT VERSUS HOST DISEASE
     Dosage: 10 MG, BID
     Route: 048

REACTIONS (4)
  - Graft versus host disease in lung [Unknown]
  - Graft versus host disease in eye [Unknown]
  - Product use in unapproved indication [Unknown]
  - Graft versus host disease in skin [Unknown]
